FAERS Safety Report 8574663 (Version 2)
Quarter: 2013Q1

REPORT INFORMATION
  Report Type: Report from Study
  Country: CA (occurrence: CA)
  Receive Date: 20120522
  Receipt Date: 20130215
  Transmission Date: 20140127
  Serious: Yes (Hospitalization)
  Sender: FDA-Public Use
  Company Number: CA-ABBOTT-12P-028-0935447-00

PATIENT
  Age: 26 None
  Sex: Female

DRUGS (2)
  1. HUMIRA 40 MG/ 0.8 ML PRE-FILLED SYRINGE [Suspect]
     Indication: CROHN^S DISEASE
     Route: 058
     Dates: start: 20100611
  2. HUMIRA 40 MG/ 0.8 ML PRE-FILLED SYRINGE [Suspect]
     Route: 058

REACTIONS (9)
  - Intussusception [Recovered/Resolved]
  - Abdominal pain [Unknown]
  - Crohn^s disease [Unknown]
  - Abdominal pain [Unknown]
  - Subileus [Unknown]
  - Abdominal pain lower [Unknown]
  - Inflammation [Unknown]
  - Incorrect dose administered [Unknown]
  - Localised intraabdominal fluid collection [Unknown]
